FAERS Safety Report 5849106-0 (Version None)
Quarter: 2008Q3

REPORT INFORMATION
  Report Type: 
  Country: None (occurrence: None)
  Receive Date: 20080815
  Receipt Date: 20080802
  Transmission Date: 20090109
  Serious: Yes (Other)
  Sender: FDA-Public Use
  Company Number: 1000000493

PATIENT
  Age: 51 Year
  Sex: Male

DRUGS (4)
  1. CITALOPRAM HYDROBROMIDE [Suspect]
     Dosage: ONCE, ORAL
     Route: 048
     Dates: start: 20080802, end: 20080802
  2. LYRICA [Suspect]
     Dosage: ONCE, ORAL
     Route: 048
     Dates: start: 20080802, end: 20080802
  3. PIPAMPERON [Suspect]
     Dosage: ONCE, ORAL
     Route: 048
     Dates: start: 20080802, end: 20080802
  4. ALCOHOL [Suspect]
     Dosage: ONCE, ORAL
     Route: 048
     Dates: start: 20080802, end: 20080802

REACTIONS (5)
  - COMA [None]
  - MULTIPLE DRUG OVERDOSE INTENTIONAL [None]
  - MYDRIASIS [None]
  - RESPIRATORY DEPRESSION [None]
  - SUICIDE ATTEMPT [None]
